FAERS Safety Report 7352834-1 (Version None)
Quarter: 2011Q1

REPORT INFORMATION
  Report Type: 
  Country: None (occurrence: None)
  Receive Date: 20110315
  Receipt Date: 20110301
  Transmission Date: 20110831
  Serious: Yes (Other)
  Sender: FDA-Public Use
  Company Number: PHHY2011VE08706

PATIENT
  Sex: Female

DRUGS (3)
  1. HUMIRA [Concomitant]
     Indication: HYPERTENSION
     Route: 058
  2. ACLASTA [Suspect]
     Dosage: 5 MG
     Route: 042
     Dates: start: 20100501
  3. ACLASTA [Suspect]
     Indication: OSTEOPOROSIS
     Dosage: 5 MG,
     Route: 042
     Dates: start: 20090101

REACTIONS (4)
  - PAIN IN JAW [None]
  - TOOTH LOSS [None]
  - DENTAL CARIES [None]
  - PAIN [None]
